FAERS Safety Report 4293515-0 (Version None)
Quarter: 2004Q1

REPORT INFORMATION
  Report Type: 
  Country: None (occurrence: None)
  Receive Date: 20040212
  Receipt Date: 20030630
  Transmission Date: 20041129
  Serious: No
  Sender: FDA-Public Use
  Company Number: US-GLAXOSMITHKLINE-A0414379A

PATIENT
  Age: 31 Year
  Sex: Female

DRUGS (2)
  1. PAXIL [Suspect]
     Route: 048
     Dates: start: 20020501, end: 20021201
  2. BIRTH CONTROL PILLS [Concomitant]

REACTIONS (1)
  - WEIGHT INCREASED [None]
